FAERS Safety Report 7724951-5 (Version None)
Quarter: 2011Q3

REPORT INFORMATION
  Report Type: 
  Country: None (occurrence: None)
  Receive Date: 20110901
  Receipt Date: 20110819
  Transmission Date: 20111222
  Serious: Yes (Death)
  Sender: FDA-Public Use
  Company Number: US-MYLANLABS-2011S1017713

PATIENT
  Age: 72 Year
  Sex: Female

DRUGS (7)
  1. CAMPATH [Suspect]
     Route: 041
  2. CARMUSTINE [Suspect]
     Indication: PERIPHERAL T-CELL LYMPHOMA UNSPECIFIED STAGE III
     Route: 065
  3. ETOPOSIDE [Suspect]
     Indication: PERIPHERAL T-CELL LYMPHOMA UNSPECIFIED STAGE III
     Route: 065
  4. CAMPATH [Suspect]
     Route: 041
  5. MELPHALAN [Suspect]
     Indication: PERIPHERAL T-CELL LYMPHOMA UNSPECIFIED STAGE III
     Route: 065
  6. CAMPATH [Suspect]
     Indication: STEM CELL TRANSPLANT
     Route: 041
  7. CYTARABINE [Suspect]
     Indication: PERIPHERAL T-CELL LYMPHOMA UNSPECIFIED STAGE III
     Route: 065

REACTIONS (12)
  - PARAINFLUENZAE VIRUS INFECTION [None]
  - MULTI-ORGAN FAILURE [None]
  - FEBRILE NEUTROPENIA [None]
  - DEHYDRATION [None]
  - CLOSTRIDIUM DIFFICILE COLITIS [None]
  - CYTOMEGALOVIRUS INFECTION [None]
  - PANCYTOPENIA [None]
  - ADENOVIRUS INFECTION [None]
  - ASTHENIA [None]
  - BK VIRUS INFECTION [None]
  - MUCOSAL INFLAMMATION [None]
  - FATIGUE [None]
